FAERS Safety Report 4293381-3 (Version None)
Quarter: 2004Q1

REPORT INFORMATION
  Report Type: 
  Country: None (occurrence: None)
  Receive Date: 20040210
  Receipt Date: 20040127
  Transmission Date: 20041129
  Serious: Yes (Death, Hospitalization)
  Sender: FDA-Public Use
  Company Number: 2003-06098

PATIENT
  Age: 46 Year
  Sex: Male
  Weight: 65.7716 kg

DRUGS (13)
  1. TENOFOVIR DF [Suspect]
     Indication: HIV INFECTION
     Dosage: 300 MG QD PO
     Route: 048
     Dates: start: 20021007, end: 20030904
  2. DDI [Suspect]
     Indication: HIV INFECTION
     Dosage: 250 MG QD PO
     Route: 048
     Dates: start: 20021007, end: 20030811
  3. INDINAVIR [Suspect]
     Indication: HIV INFECTION
     Dosage: 800 MG BID PO
     Route: 048
     Dates: start: 20021007, end: 20030904
  4. SAQUINAVIR [Suspect]
     Indication: HIV INFECTION
     Dosage: 1000 MG BID PO
     Route: 048
     Dates: start: 20021007, end: 20030904
  5. RITONAVIR [Suspect]
     Indication: HIV INFECTION
     Dosage: 100 MG BIID PO
     Route: 048
     Dates: start: 20021007, end: 20030904
  6. BACTRIM [Concomitant]
  7. TOPAMAX [Concomitant]
  8. GLUCOTROL XL [Concomitant]
  9. DIFLUCAN [Concomitant]
  10. AMITRIPTYLINE [Concomitant]
  11. NEURONTIN [Concomitant]
  12. AZITHROMYCIN [Concomitant]
  13. ^TRIPLE STRENGTH ANTIBIOTIC^ [Concomitant]

REACTIONS (14)
  - ABDOMINAL PAIN [None]
  - CARDIO-RESPIRATORY ARREST [None]
  - CHEST PAIN [None]
  - CHOLELITHIASIS [None]
  - HEPATIC STEATOSIS [None]
  - JAUNDICE [None]
  - LACTIC ACIDOSIS [None]
  - LIVER FUNCTION TEST ABNORMAL [None]
  - PAIN IN EXTREMITY [None]
  - PANCREATITIS [None]
  - PNEUMONIA [None]
  - SEPSIS [None]
  - STAPHYLOCOCCAL ABSCESS [None]
  - STAPHYLOCOCCAL INFECTION [None]
